FAERS Safety Report 24831843 (Version 1)
Quarter: 2025Q1

REPORT INFORMATION
  Report Type: Spontaneous
  Country: US (occurrence: US)
  Receive Date: 20250110
  Receipt Date: 20250110
  Transmission Date: 20250409
  Serious: No
  Sender: PFIZER
  Company Number: US-PFIZER INC-PV202500002482

PATIENT
  Age: 57 Year

DRUGS (1)
  1. FLUCONAZOLE [Suspect]
     Active Substance: FLUCONAZOLE

REACTIONS (3)
  - Rash erythematous [Unknown]
  - Tenderness [Unknown]
  - Abscess [Unknown]
